FAERS Safety Report 12265557 (Version 1)
Quarter: 2016Q2

REPORT INFORMATION
  Report Type: Spontaneous
  Country: US (occurrence: US)
  Receive Date: 20160413
  Receipt Date: 20160413
  Transmission Date: 20160815
  Serious: Yes (Hospitalization)
  Sender: FDA-Public Use
  Company Number: US-VIIV HEALTHCARE LIMITED-US2016047587

PATIENT
  Sex: Male

DRUGS (1)
  1. TRIUMEQ [Suspect]
     Active Substance: ABACAVIR SULFATE\DOLUTEGRAVIR SODIUM\LAMIVUDINE
     Indication: HIV INFECTION
     Dosage: UNK, U
     Dates: start: 20160329

REACTIONS (4)
  - Drug hypersensitivity [Recovered/Resolved]
  - HLA marker study positive [Unknown]
  - Ill-defined disorder [Recovered/Resolved]
  - Body temperature increased [Unknown]

NARRATIVE: CASE EVENT DATE: 2016
